FAERS Safety Report 24955002 (Version 1)
Quarter: 2025Q1

REPORT INFORMATION
  Report Type: Spontaneous
  Country: CA (occurrence: CA)
  Receive Date: 20250211
  Receipt Date: 20250211
  Transmission Date: 20250409
  Serious: Yes (Hospitalization)
  Sender: ACCORD
  Company Number: None

PATIENT
  Age: 60 Year
  Sex: Female
  Weight: 45 kg

DRUGS (12)
  1. FLUOROURACIL [Suspect]
     Active Substance: FLUOROURACIL
     Indication: Squamous cell carcinoma
  2. PEMBROLIZUMAB [Suspect]
     Active Substance: PEMBROLIZUMAB
     Indication: Squamous cell carcinoma
  3. LEVOTHYROXINE [Concomitant]
     Active Substance: LEVOTHYROXINE
  4. DICLOFENAC [Concomitant]
     Active Substance: DICLOFENAC
  5. FERROUS SULFATE [Concomitant]
     Active Substance: FERROUS SULFATE
  6. CALCIUM CARBONATE\VITAMIN D [Concomitant]
     Active Substance: CALCIUM CARBONATE\VITAMIN D
  7. MAGNESIUM [Concomitant]
     Active Substance: MAGNESIUM
  8. MIRTAZAPINE [Concomitant]
     Active Substance: MIRTAZAPINE
  9. OLANZAPINE [Concomitant]
     Active Substance: OLANZAPINE
  10. PROCHLORPERAZINE [Concomitant]
     Active Substance: PROCHLORPERAZINE
  11. ALBUTEROL [Concomitant]
     Active Substance: ALBUTEROL
     Route: 042
  12. SYMBICORT [Concomitant]
     Active Substance: BUDESONIDE\FORMOTEROL FUMARATE DIHYDRATE

REACTIONS (1)
  - Febrile neutropenia [Recovered/Resolved]
